FAERS Safety Report 7218617-8 (Version None)
Quarter: 2011Q1

REPORT INFORMATION
  Report Type: 
  Country: None (occurrence: None)
  Receive Date: 20110110
  Receipt Date: 20101231
  Transmission Date: 20110831
  Serious: Yes (Death)
  Sender: FDA-Public Use
  Company Number: US-PFIZER INC-2011002312

PATIENT
  Age: 60 Year
  Sex: Male

DRUGS (4)
  1. NITROGLYCERIN [Suspect]
  2. HYDROCODONE [Suspect]
  3. DIPHENHYDRAMINE [Suspect]
  4. PROPOXYPHENE [Suspect]

REACTIONS (3)
  - RESPIRATORY ARREST [None]
  - CARDIAC ARREST [None]
  - OVERDOSE [None]
